FAERS Safety Report 10233481 (Version 1)
Quarter: 2014Q2

REPORT INFORMATION
  Report Type: Spontaneous
  Country: GB (occurrence: GB)
  Receive Date: 20140612
  Receipt Date: 20140612
  Transmission Date: 20141212
  Serious: Yes (Life-Threatening, Other)
  Sender: FDA-Public Use
  Company Number: PHFR2014GB004102

PATIENT
  Age: 47 Year
  Sex: Male
  Weight: 97 kg

DRUGS (13)
  1. CLOZAPINE [Suspect]
     Indication: PSYCHOTIC DISORDER
     Dosage: 400 MG, QD
     Route: 048
     Dates: end: 20140503
  2. ADCAL-D3 [Concomitant]
     Dosage: UNK UKN, UNK
  3. CYCLIZINE [Concomitant]
     Dosage: UNK UKN, UNK
  4. HALOPERIDOL [Concomitant]
     Dosage: UNK UKN, UNK
  5. LANSOPRAZOLE [Concomitant]
     Dosage: UNK UKN, UNK
  6. MACROGOL [Concomitant]
     Dosage: UNK UKN, UNK
  7. OLANZAPINE [Concomitant]
     Dosage: UNK UKN, UNK
  8. ONDANSETRON [Concomitant]
     Dosage: UNK UKN, UNK
  9. PREDNISOLONE [Concomitant]
     Dosage: UNK UKN, UNK
  10. SALBUTAMOL [Concomitant]
     Dosage: UNK UKN, UNK
  11. THIAMINE [Concomitant]
     Dosage: UNK UKN, UNK
  12. VITAMIN B COMPLEX [Concomitant]
     Dosage: UNK UKN, UNK
  13. ZOPICLONE [Concomitant]
     Dosage: UNK UKN, UNK

REACTIONS (1)
  - Cardiac failure chronic [Not Recovered/Not Resolved]
